FAERS Safety Report 8854029 (Version 1)
Quarter: 2012Q4

REPORT INFORMATION
  Report Type: 
  Country: US (occurrence: US)
  Receive Date: 20121022
  Receipt Date: 20121022
  Transmission Date: 20130627
  Serious: Yes (Death)
  Sender: FDA-Public Use
  Company Number: PHEH2012US020600

PATIENT
  Sex: Female

DRUGS (8)
  1. GLEEVEC [Suspect]
     Indication: CHRONIC MYELOID LEUKAEMIA
     Dosage: 1 DF (400 mg), every day
     Route: 048
  2. SEVELAMER [Concomitant]
     Dosage: UNK UKN, UNK
  3. PLAVIX [Concomitant]
     Dosage: UNK UKN, UNK
  4. SYNTHROID [Concomitant]
     Dosage: UNK UKN, UNK
  5. PAROXETINE [Concomitant]
     Dosage: UNK UKN, UNK
  6. VITAMIN B COMPLEX [Concomitant]
     Dosage: UNK UKN, UNK
  7. VITAMIN B12 [Concomitant]
     Dosage: 1000 ug, UNK
  8. ENDOCET [Concomitant]
     Dosage: UNK UKN, UNK

REACTIONS (1)
  - Death [Fatal]
